FAERS Safety Report 7780402-6 (Version None)
Quarter: 2011Q3

REPORT INFORMATION
  Report Type: 
  Country: None (occurrence: None)
  Receive Date: 20110922
  Receipt Date: 20110916
  Transmission Date: 20111222
  Serious: Yes (Hospitalization, Other)
  Sender: FDA-Public Use
  Company Number: CL-346-2011

PATIENT
  Age: 60 Year
  Sex: Female

DRUGS (1)
  1. CIPROFLOXACIN [Suspect]
     Indication: PERIDIVERTICULAR ABSCESS
     Dosage: 400 MG ONCE A DAY IV
     Route: 042

REACTIONS (15)
  - NEUROTOXICITY [None]
  - AGITATION [None]
  - FEAR [None]
  - TREMOR [None]
  - MEMORY IMPAIRMENT [None]
  - CATATONIA [None]
  - MUTISM [None]
  - MYOCLONUS [None]
  - DIET REFUSAL [None]
  - SELF INJURIOUS BEHAVIOUR [None]
  - RETCHING [None]
  - SCREAMING [None]
  - DISTURBANCE IN ATTENTION [None]
  - ABNORMAL BEHAVIOUR [None]
  - PARANOIA [None]
